FAERS Safety Report 12885316 (Version 4)
Quarter: 2019Q1

REPORT INFORMATION
  Report Type: Report from Study
  Country: MX (occurrence: MX)
  Receive Date: 20161026
  Receipt Date: 20190318
  Transmission Date: 20190417
  Serious: Yes (Life-Threatening, Other)
  Sender: FDA-Public Use
  Company Number: MX-INCYTE CORPORATION-2016IN006728

PATIENT

DRUGS (6)
  1. MICARDIS PLUS [Concomitant]
     Active Substance: HYDROCHLOROTHIAZIDE\TELMISARTAN
     Indication: HYPERTENSION
     Dosage: 1 DF, UNK (STARTED 6 MONTHS AGO) IN THE MORNING
     Route: 048
  2. ARA 2 [Concomitant]
     Active Substance: LOSARTAN POTASSIUM
     Indication: HYPERTENSION
     Dosage: 1 DF, UNK (STARTED 6 MONTHS AGO) AT NIGHT
     Route: 048
  3. PROLIA [Concomitant]
     Active Substance: DENOSUMAB
     Indication: OSTEOPOROSIS
     Dosage: 1 DF, UNK (EVERY 6 MONTHS) (STARTED AROUND 6 YEARS AGO)
     Route: 058
  4. VALSARTAN. [Concomitant]
     Active Substance: VALSARTAN
     Indication: HYPERTENSION
     Dosage: UNK
     Route: 065
  5. JAKAVI [Suspect]
     Active Substance: RUXOLITINIB
     Indication: FIBROSIS
     Dosage: 5 MG, QD
     Route: 048
     Dates: start: 2011
  6. JAKAVI [Suspect]
     Active Substance: RUXOLITINIB
     Indication: ESSENTIAL THROMBOCYTHAEMIA
     Dosage: 20 MG, QD (IN MORNING) (STARTED AROUND 7 YEARS AGO)
     Route: 048

REACTIONS (15)
  - Inappropriate schedule of product administration [Unknown]
  - Peripheral venous disease [Unknown]
  - Asthenia [Unknown]
  - Yellow skin [Unknown]
  - Varicose vein [Not Recovered/Not Resolved]
  - Contusion [Unknown]
  - Headache [Not Recovered/Not Resolved]
  - Feeling abnormal [Not Recovered/Not Resolved]
  - Feeling abnormal [Recovered/Resolved]
  - Dizziness [Unknown]
  - Product use in unapproved indication [Unknown]
  - Osteoporosis [Not Recovered/Not Resolved]
  - Fatigue [Not Recovered/Not Resolved]
  - Cataract [Recovered/Resolved]
  - Anaemia [Not Recovered/Not Resolved]
